FAERS Safety Report 17980752 (Version 1)
Quarter: 2020Q3

REPORT INFORMATION
  Report Type: Spontaneous
  Country: US (occurrence: US)
  Receive Date: 20200704
  Receipt Date: 20200704
  Transmission Date: 20201103
  Serious: Yes (Other)
  Sender: FDA-Public Use
  Company Number: US-HIKMA PHARMACEUTICALS USA INC.-US-H14001-20-03127

PATIENT
  Age: 87 Year

DRUGS (3)
  1. LEUCOVORIN. [Suspect]
     Active Substance: LEUCOVORIN
     Indication: GASTROINTESTINAL CARCINOMA
     Route: 065
  2. FLUOROURACIL. [Suspect]
     Active Substance: FLUOROURACIL
     Indication: GASTROINTESTINAL CARCINOMA
     Route: 065
  3. IRINOTECAN [Suspect]
     Active Substance: IRINOTECAN
     Indication: GASTROINTESTINAL CARCINOMA
     Route: 065

REACTIONS (1)
  - Small intestinal obstruction [Unknown]
